FAERS Safety Report 8173100-0 (Version None)
Quarter: 2012Q1

REPORT INFORMATION
  Report Type: 
  Country: None (occurrence: None)
  Receive Date: 20120229
  Receipt Date: 20120217
  Transmission Date: 20120608
  Serious: Yes (Hospitalization)
  Sender: FDA-Public Use
  Company Number: JP-JNJFOC-20120207191

PATIENT
  Sex: Male
  Weight: 83 kg

DRUGS (14)
  1. REMICADE [Suspect]
     Route: 042
     Dates: start: 20100910
  2. REMICADE [Suspect]
     Indication: PSORIASIS
     Dosage: 5MG/KG
     Route: 042
     Dates: start: 20100827
  3. REMICADE [Suspect]
     Route: 042
     Dates: start: 20101203
  4. REMICADE [Suspect]
     Route: 042
     Dates: start: 20101008
  5. REMICADE [Suspect]
     Route: 042
     Dates: start: 20101008
  6. REMICADE [Suspect]
     Route: 042
     Dates: start: 20101203
  7. REMICADE [Suspect]
     Indication: PSORIATIC ARTHROPATHY
     Dosage: 5MG/KG
     Route: 042
     Dates: start: 20100827
  8. REMICADE [Suspect]
     Dosage: SIXTH DOSE
     Route: 042
     Dates: start: 20120105
  9. REMICADE [Suspect]
     Route: 042
     Dates: start: 20110128
  10. REMICADE [Suspect]
     Route: 042
     Dates: start: 20100910
  11. REMICADE [Suspect]
     Dosage: SIXTH DOSE
     Route: 042
     Dates: start: 20120105
  12. REMICADE [Suspect]
     Dosage: SEVENTH DOSE
     Route: 042
     Dates: start: 20120119
  13. REMICADE [Suspect]
     Route: 042
     Dates: start: 20110128
  14. REMICADE [Suspect]
     Dosage: SEVENTH DOSE
     Route: 042
     Dates: start: 20120119

REACTIONS (8)
  - BLOOD PRESSURE DECREASED [None]
  - ADVERSE EVENT [None]
  - CYANOSIS [None]
  - OXYGEN SATURATION DECREASED [None]
  - INFUSION RELATED REACTION [None]
  - ANAPHYLACTIC SHOCK [None]
  - CHILLS [None]
  - URTICARIA [None]
